FAERS Safety Report 24983722 (Version 5)
Quarter: 2025Q3

REPORT INFORMATION
  Report Type: Report from Study
  Country: BR (occurrence: BR)
  Receive Date: 20250219
  Receipt Date: 20250918
  Transmission Date: 20251021
  Serious: Yes (Life-Threatening, Other)
  Sender: NOVARTIS
  Company Number: BR-002147023-NVSC2024BR135950

PATIENT
  Sex: Female
  Weight: 68.5 kg

DRUGS (16)
  1. KISQALI [Suspect]
     Active Substance: RIBOCICLIB SUCCINATE
     Indication: Breast cancer stage III
     Dosage: 2 DOSAGE FORM, QD
     Route: 065
     Dates: start: 202303
  2. KISQALI [Suspect]
     Active Substance: RIBOCICLIB SUCCINATE
     Indication: Metastasis
     Route: 065
     Dates: start: 20240605, end: 20240626
  3. KISQALI [Suspect]
     Active Substance: RIBOCICLIB SUCCINATE
     Route: 065
  4. KISQALI [Suspect]
     Active Substance: RIBOCICLIB SUCCINATE
     Dosage: 2 DOSAGE FORM, QD (2 TABLETS A DAY IN THE MORNING EVERY 21 DAYS WITH A 7-DAY BREAK)
     Route: 065
  5. KISQALI [Suspect]
     Active Substance: RIBOCICLIB SUCCINATE
     Dosage: 3 DOSAGE FORM, QD
     Route: 065
  6. KISQALI [Suspect]
     Active Substance: RIBOCICLIB SUCCINATE
     Dosage: 2 DOSAGE FORM, QD, TAKE 2 TABLETS PER DAY FOR 21 DAYS AND TAKE A BREAK OF 7 DAYS.
     Route: 065
  7. KISQALI [Suspect]
     Active Substance: RIBOCICLIB SUCCINATE
     Dosage: 2 DOSAGE FORM, QD
     Route: 065
  8. KISQALI [Suspect]
     Active Substance: RIBOCICLIB SUCCINATE
     Route: 065
     Dates: end: 20250827
  9. ALLOPURINOL [Suspect]
     Active Substance: ALLOPURINOL
     Indication: Gout
     Route: 048
     Dates: start: 202007
  10. ALLOPURINOL [Suspect]
     Active Substance: ALLOPURINOL
     Dosage: 2 DOSAGE FORM, QD, INITIALLY
     Route: 048
  11. ALLOPURINOL [Suspect]
     Active Substance: ALLOPURINOL
     Dosage: 1 DOSAGE FORM, QD
     Route: 048
  12. ENALAPRIL [Concomitant]
     Active Substance: ENALAPRIL
     Indication: Hypertension
     Dosage: 1 DOSAGE FORM, (10 MG) BID TABLET TWICE A DAY/MORNING AND EVENING
     Route: 048
     Dates: start: 2010
  13. HYDROCHLOROTHIAZIDE [Concomitant]
     Active Substance: HYDROCHLOROTHIAZIDE
     Indication: Hypertension
     Dosage: 1 DOSAGE FORM (25 MG), QD (IN THE MORNING) (TABLET)
     Route: 065
     Dates: start: 2010
  14. EXEMESTANE [Concomitant]
     Active Substance: EXEMESTANE
     Indication: Metastasis
     Dosage: 1 DOSAGE FORM, QD (25 MG) (1 TABLET A DAY IN THE MORNING)
     Route: 048
  15. OMEPRAZOLE [Concomitant]
     Active Substance: OMEPRAZOLE
     Indication: Product used for unknown indication
     Dosage: 1 DOSAGE FORM (20 MG), QD (1 TABLET ON AN EMPTY STOMACH IN THE MORNING)
     Route: 048
  16. DIPYRONE [Concomitant]
     Active Substance: DIPYRONE
     Indication: Pelvic pain
     Route: 065

REACTIONS (38)
  - Haemoglobin decreased [Not Recovered/Not Resolved]
  - Anaemia [Not Recovered/Not Resolved]
  - Leukopenia [Unknown]
  - Lymphocyte count abnormal [Unknown]
  - Neutrophil count decreased [Unknown]
  - Decreased immune responsiveness [Recovering/Resolving]
  - Eyelid skin dryness [Recovered/Resolved]
  - Eye irritation [Recovered/Resolved]
  - Eye inflammation [Recovered/Resolved]
  - Eyelid irritation [Recovered/Resolved]
  - Dehydration [Not Recovered/Not Resolved]
  - Eye pruritus [Recovering/Resolving]
  - Dry throat [Recovering/Resolving]
  - Platelet count decreased [Recovered/Resolved]
  - Dry eye [Recovering/Resolving]
  - Lacrimation increased [Recovered/Resolved]
  - Dry skin [Recovering/Resolving]
  - Back pain [Unknown]
  - Skin burning sensation [Recovered/Resolved]
  - Haematocrit decreased [Unknown]
  - Mean cell haemoglobin concentration decreased [Recovered/Resolved]
  - Hypochromasia [Unknown]
  - Mean platelet volume abnormal [Unknown]
  - Plateletcrit abnormal [Unknown]
  - Platelet distribution width abnormal [Unknown]
  - Muscular weakness [Not Recovered/Not Resolved]
  - Fatigue [Recovered/Resolved]
  - Asthenia [Recovered/Resolved]
  - Pain in extremity [Not Recovered/Not Resolved]
  - Peripheral coldness [Not Recovered/Not Resolved]
  - Red blood cell count increased [Unknown]
  - Procalcitonin increased [Unknown]
  - Laboratory test abnormal [Unknown]
  - Red cell distribution width increased [Unknown]
  - Full blood count decreased [Unknown]
  - Mean cell haemoglobin concentration decreased [Unknown]
  - Macrocytosis [Unknown]
  - Platelet count decreased [Unknown]

NARRATIVE: CASE EVENT DATE: 20230101
